FAERS Safety Report 4648698-7 (Version None)
Quarter: 2005Q2

REPORT INFORMATION
  Report Type: 
  Country: None (occurrence: None)
  Receive Date: 20050427
  Receipt Date: 20050413
  Transmission Date: 20051028
  Serious: Yes (Other)
  Sender: FDA-Public Use
  Company Number: CIP05000872

PATIENT
  Age: 60 Year
  Sex: Female

DRUGS (2)
  1. RISEDRONATE SODIUM [Suspect]
     Indication: OSTEOPOROSIS
     Dosage: 2.5 MG DAILY, ORAL
     Route: 048
     Dates: start: 20040101, end: 20050301
  2. DRUG NOS [Concomitant]

REACTIONS (2)
  - LARGE INTESTINE CARCINOMA [None]
  - WHITE BLOOD CELL COUNT DECREASED [None]
